FAERS Safety Report 19823709 (Version 1)
Quarter: 2021Q3

REPORT INFORMATION
  Report Type: Spontaneous
  Country: FR (occurrence: FR)
  Receive Date: 20210913
  Receipt Date: 20210913
  Transmission Date: 20211014
  Serious: Yes (Death)
  Sender: FDA-Public Use
  Company Number: FR-ABBVIE-21K-056-4073311-00

PATIENT
  Age: 84 Year
  Sex: Male

DRUGS (14)
  1. INIPOMP [Suspect]
     Active Substance: PANTOPRAZOLE SODIUM
     Indication: GASTROOESOPHAGEAL REFLUX DISEASE
     Route: 048
  2. XARELTO [Suspect]
     Active Substance: RIVAROXABAN
     Indication: ATRIAL FIBRILLATION
     Route: 048
     Dates: start: 20210726
  3. VIDAZA [Suspect]
     Active Substance: AZACITIDINE
     Indication: MYELODYSPLASTIC SYNDROME
     Dosage: 150 MG FOR 4 DAYS EVERY MONTH
     Route: 059
     Dates: start: 20201208, end: 20210808
  4. XULTOPHY 100/3.6 [Suspect]
     Active Substance: INSULIN DEGLUDEC\LIRAGLUTIDE
     Indication: DIABETES MELLITUS
     Route: 058
  5. APROVEL [Suspect]
     Active Substance: IRBESARTAN
     Indication: HYPERTENSION
     Route: 048
  6. SECTRAL [Suspect]
     Active Substance: ACEBUTOLOL HYDROCHLORIDE
     Indication: ATRIAL FIBRILLATION
     Route: 048
     Dates: start: 20210726
  7. LASILIX [Suspect]
     Active Substance: FUROSEMIDE
     Indication: OEDEMA DUE TO CARDIAC DISEASE
     Route: 048
  8. UVEDOSE [Suspect]
     Active Substance: CHOLECALCIFEROL
     Indication: VITAMIN D DEFICIENCY
     Route: 048
  9. LYRICA [Suspect]
     Active Substance: PREGABALIN
     Indication: INTERMITTENT CLAUDICATION
     Route: 048
  10. INEGY [Suspect]
     Active Substance: EZETIMIBE\SIMVASTATIN
     Indication: HYPERCHOLESTEROLAEMIA
     Dosage: 10 MG/20 MG
     Route: 048
  11. ADENURIC [Suspect]
     Active Substance: FEBUXOSTAT
     Indication: HYPERURICAEMIA
     Route: 048
  12. VENETOCLAX. [Suspect]
     Active Substance: VENETOCLAX
     Indication: MYELODYSPLASTIC SYNDROME
     Dosage: 400MG PER DAY FOR 3 WEEKS OUT OF 4
     Route: 048
     Dates: start: 20201208, end: 20210718
  13. KARDEGIC [Suspect]
     Active Substance: ASPIRIN DL-LYSINE
     Indication: VASCULAR DISORDER PROPHYLAXIS
     Dosage: POWDER FOR ORAL SOLUTION IN SACHET?DOSE
     Route: 048
     Dates: start: 20210726
  14. IPERTEN [Suspect]
     Active Substance: MANIDIPINE
     Indication: HYPERTENSION
     Route: 048

REACTIONS (1)
  - Sudden death [Fatal]

NARRATIVE: CASE EVENT DATE: 20210818
